FAERS Safety Report 9144291 (Version 1)
Quarter: 2013Q1

REPORT INFORMATION
  Report Type: Spontaneous
  Country: US (occurrence: US)
  Receive Date: 20130306
  Receipt Date: 20130306
  Transmission Date: 20140127
  Serious: No
  Sender: FDA-Public Use
  Company Number: US-009507513-1303USA000462

PATIENT
  Sex: 0

DRUGS (1)
  1. PROPECIA [Suspect]
     Route: 048

REACTIONS (1)
  - Peyronie^s disease [Unknown]
